FAERS Safety Report 16107571 (Version 1)
Quarter: 2019Q1

REPORT INFORMATION
  Report Type: Spontaneous
  Country: US (occurrence: US)
  Receive Date: 20190322
  Receipt Date: 20190322
  Transmission Date: 20190418
  Serious: No
  Sender: FDA-Public Use
  Company Number: US-OMEROS CORPORATION-2018OME00007

PATIENT
  Age: 72 Year
  Sex: Female
  Weight: 63.04 kg

DRUGS (34)
  1. BSS (ALCON) [Concomitant]
     Dosage: 500 ML
     Dates: start: 20181003, end: 20181003
  2. CYCLOPENTOLATE. [Concomitant]
     Active Substance: CYCLOPENTOLATE
     Dosage: UNK
     Dates: start: 20181003, end: 20181003
  3. NEO-SYNEPHRINE [Concomitant]
     Active Substance: PHENYLEPHRINE HYDROCHLORIDE
     Dosage: UNK
     Dates: start: 20181003, end: 20181003
  4. VIGAMOX [Concomitant]
     Active Substance: MOXIFLOXACIN HYDROCHLORIDE
     Dosage: UNK
     Dates: start: 20181003, end: 20181003
  5. POTASSIUM [Concomitant]
     Active Substance: POTASSIUM
  6. OMIDRIA [Suspect]
     Active Substance: KETOROLAC\PHENYLEPHRINE
     Indication: LENS EXTRACTION
     Dosage: ADDED TO BSS, ONCE
     Route: 047
     Dates: start: 20181003, end: 20181003
  7. VERSED [Concomitant]
     Active Substance: MIDAZOLAM HYDROCHLORIDE
     Dosage: UNK
     Dates: start: 20181003, end: 20181003
  8. KETOROLAC [Concomitant]
     Active Substance: KETOROLAC\KETOROLAC TROMETHAMINE
     Dosage: UNK
     Dates: start: 20181003, end: 20181003
  9. PHENYLEPHRINE [Concomitant]
     Active Substance: PHENYLEPHRINE\PHENYLEPHRINE HYDROCHLORIDE
     Dosage: UNK
     Dates: start: 20181003, end: 20181003
  10. BETADINE [Concomitant]
     Active Substance: POVIDONE-IODINE
     Dosage: UNK
     Dates: start: 20181003, end: 20181003
  11. SOTALOL HCL [Concomitant]
     Active Substance: SOTALOL
  12. BUMEX [Concomitant]
     Active Substance: BUMETANIDE
  13. DIGOXIN. [Concomitant]
     Active Substance: DIGOXIN
  14. UNSPECIFIED DUOVISC DEVICE (ALCON) [Concomitant]
     Dosage: UNK
     Route: 031
     Dates: start: 20181003, end: 20181003
  15. TETRACAINE. [Concomitant]
     Active Substance: TETRACAINE
     Dosage: UNK
     Dates: start: 20181003, end: 20181003
  16. CIPROFLOXACIN. [Concomitant]
     Active Substance: CIPROFLOXACIN
     Dosage: UNK
     Dates: start: 20181003, end: 20181003
  17. LIDOCAINE. [Concomitant]
     Active Substance: LIDOCAINE
     Dosage: UNK
     Dates: start: 20181003, end: 20181003
  18. TETRAVISC [Concomitant]
     Active Substance: TETRACAINE HYDROCHLORIDE
     Dosage: UNK
     Dates: start: 20181003, end: 20181003
  19. ATROPINE. [Concomitant]
     Active Substance: ATROPINE
     Dosage: UNK
     Dates: start: 20181003, end: 20181003
  20. MINOXIL [Concomitant]
  21. ^IRBIVASTATIN^ [Concomitant]
  22. JANUVIA [Concomitant]
     Active Substance: SITAGLIPTIN PHOSPHATE
  23. ROSUVASTATIN. [Concomitant]
     Active Substance: ROSUVASTATIN
  24. METOPROLOL. [Concomitant]
     Active Substance: METOPROLOL
  25. EPINEPHRINE-PF (BPI LABS) [Concomitant]
     Dosage: 0.3 ML WITH BSS
     Dates: start: 20181003, end: 20181003
  26. WARFARIN [Concomitant]
     Active Substance: WARFARIN
  27. LANTUS [Concomitant]
     Active Substance: INSULIN GLARGINE
  28. RANITIDINE. [Concomitant]
     Active Substance: RANITIDINE
  29. GENTAMICIN-PF (FRESENIUS KABI) [Concomitant]
     Dosage: 4 MG WITH BSS
     Dates: start: 20181003, end: 20181003
  30. UNSPECIFIED STOOL SOFTENER [Concomitant]
  31. ISOSORBIDE. [Concomitant]
     Active Substance: ISOSORBIDE
  32. TROPICAMIDE. [Concomitant]
     Active Substance: TROPICAMIDE
     Dosage: UNK
     Dates: start: 20181003, end: 20181003
  33. GLIMEPIRIDE. [Concomitant]
     Active Substance: GLIMEPIRIDE
  34. DOXAZOSIN [Concomitant]
     Active Substance: DOXAZOSIN\DOXAZOSIN MESYLATE

REACTIONS (1)
  - Corneal oedema [Recovered/Resolved]

NARRATIVE: CASE EVENT DATE: 20181004
